FAERS Safety Report 9565270 (Version 2)
Quarter: 2013Q3

REPORT INFORMATION
  Report Type: Spontaneous
  Country: FR (occurrence: FR)
  Receive Date: 20130930
  Receipt Date: 20130930
  Transmission Date: 20140515
  Serious: Yes (Other)
  Sender: FDA-Public Use
  Company Number: FR-UCBSA-095382

PATIENT
  Age: 59 Year
  Sex: Female
  Weight: 55 kg

DRUGS (3)
  1. NEUPRO [Suspect]
     Indication: RESTLESS LEGS SYNDROME
     Dosage: NEUPRO 2 MG
     Route: 062
     Dates: start: 20130708, end: 20130905
  2. TRANXENE [Concomitant]
     Indication: ANXIETY
     Route: 048
  3. BETAHISTINE [Concomitant]
     Indication: VERTIGO
     Route: 048

REACTIONS (10)
  - Tachycardia [Unknown]
  - Blood pressure fluctuation [Recovered/Resolved]
  - Chest discomfort [Recovered/Resolved]
  - Disturbance in attention [Recovered/Resolved]
  - Fatigue [Recovered/Resolved]
  - Muscular weakness [Recovered/Resolved]
  - Dizziness [Recovered/Resolved]
  - Headache [Recovered/Resolved]
  - Somnolence [Not Recovered/Not Resolved]
  - Dizziness postural [Not Recovered/Not Resolved]
